FAERS Safety Report 6913585-8 (Version None)
Quarter: 2010Q3

REPORT INFORMATION
  Report Type: 
  Country: None (occurrence: None)
  Receive Date: 20100809
  Receipt Date: 20100727
  Transmission Date: 20110219
  Serious: Yes (Life-Threatening, Hospitalization)
  Sender: FDA-Public Use
  Company Number: JP-NOVOPROD-312067

PATIENT
  Age: 52 Year
  Sex: Female
  Weight: 55 kg

DRUGS (4)
  1. VICTOZA HIKACHU INJECTION [Suspect]
     Indication: TYPE 1 DIABETES MELLITUS
     Dosage: UNK
     Route: 058
     Dates: start: 20100701
  2. VICTOZA HIKACHU INJECTION [Suspect]
     Indication: OFF LABEL USE
     Dosage: 0.6 MG, QD
     Route: 058
  3. VICTOZA HIKACHU INJECTION [Suspect]
     Indication: DIABETES MELLITUS INADEQUATE CONTROL
  4. HUMACART 3/7 [Suspect]
     Indication: TYPE 1 DIABETES MELLITUS
     Dosage: 36 U, QD
     Route: 058
     Dates: start: 20100701

REACTIONS (2)
  - DIABETIC KETOACIDOSIS [None]
  - OFF LABEL USE [None]
